FAERS Safety Report 5305176-X (Version None)
Quarter: 2007Q2

REPORT INFORMATION
  Report Type: 
  Country: None (occurrence: None)
  Receive Date: 20070416
  Receipt Date: 20070406
  Transmission Date: 20071010
  Serious: Yes (Other)
  Sender: FDA-Public Use
  Company Number: ORACEA-2007-0025

PATIENT
  Sex: Female

DRUGS (1)
  1. ORACEA [Suspect]

REACTIONS (1)
  - HYPERSENSITIVITY [None]
